FAERS Safety Report 8219878-9 (Version None)
Quarter: 2012Q1

REPORT INFORMATION
  Report Type: 
  Country: None (occurrence: None)
  Receive Date: 20120319
  Receipt Date: 20120307
  Transmission Date: 20120608
  Serious: Yes (Hospitalization, Disabling)
  Sender: FDA-Public Use
  Company Number: JP-PFIZER INC-2012054285

PATIENT
  Age: 78 Year
  Sex: Male
  Weight: 49.4 kg

DRUGS (17)
  1. BISOPROLOL FUMARATE [Suspect]
     Indication: CARDIAC FAILURE
     Dosage: 2.5 MG, 1X/DAY
     Route: 048
  2. LANIRAPID [Suspect]
     Indication: ATRIAL FIBRILLATION
     Dosage: 0.05 MG, 1X/DAY
     Route: 048
  3. LENDORMIN D [Suspect]
     Indication: INSOMNIA
     Dosage: 0.125 MG, 1X/DAY
     Route: 048
  4. EPLERENONE [Suspect]
     Indication: CARDIAC FAILURE CHRONIC
     Dosage: 25 MG, ALTERNATE DAY
     Route: 048
     Dates: start: 20111018, end: 20111116
  5. CARVEDILOL [Suspect]
     Indication: CARDIAC FAILURE
     Dosage: 10 MG, 1X/DAY
     Route: 048
  6. WARFARIN SODIUM [Suspect]
     Indication: THROMBOSIS PROPHYLAXIS
     Dosage: 2 MG, 1X/DAY
     Route: 048
  7. ASPIRIN [Suspect]
     Indication: THROMBOSIS PROPHYLAXIS
     Dosage: 100 MG, 1X/DAY
     Route: 048
     Dates: end: 20120228
  8. PERINDOPRIL ERBUMINE [Suspect]
     Indication: CARDIAC FAILURE
     Dosage: 0.5 MG, 1X/DAY
     Route: 048
  9. TRICHLORMETHIAZIDE [Suspect]
     Indication: CARDIAC FAILURE
     Dosage: 1 MG, 1X/DAY
     Route: 048
  10. KETOPROFEN [Suspect]
     Indication: BACK PAIN
     Dosage: AS NEEDED
     Route: 062
  11. PATANOL [Suspect]
     Indication: CONJUNCTIVITIS ALLERGIC
     Dosage: AS NEEDED
     Route: 047
     Dates: start: 20111107
  12. NEO MEDROL EE [Suspect]
     Indication: CONJUNCTIVITIS ALLERGIC
     Dosage: AS NEEDED
     Route: 061
     Dates: start: 20111107
  13. ALLOPURINOL [Suspect]
     Indication: HYPERURICAEMIA
     Dosage: 200 MG, 1X/DAY
     Route: 048
  14. PURSENNID [Suspect]
     Indication: CONSTIPATION
     Dosage: AS NEEDED, 1 TO 2 TABLETS
     Route: 048
  15. EPLERENONE [Suspect]
     Dosage: 25 MG, 1X/DAY
     Route: 048
     Dates: start: 20111117, end: 20120306
  16. RABEPRAZOLE SODIUM [Suspect]
     Indication: GASTRITIS PROPHYLAXIS
     Dosage: 10 MG, 1X/DAY
     Route: 048
  17. LASIX [Suspect]
     Indication: CARDIAC FAILURE
     Dosage: 20 MG, 2X/DAY
     Route: 048

REACTIONS (1)
  - CEREBRAL INFARCTION [None]
